FAERS Safety Report 10086094 (Version 1)
Quarter: 2014Q2

REPORT INFORMATION
  Report Type: Spontaneous
  Country: None (occurrence: None)
  Receive Date: 20140415
  Receipt Date: 20140415
  Transmission Date: 20141212
  Serious: Yes (Death, Other)
  Sender: FDA-Public Use
  Company Number: 09-AUR-10117

PATIENT
  Age: 55 Year
  Sex: Male

DRUGS (4)
  1. ZIDOVUDINE [Suspect]
     Indication: HIV INFECTION
  2. LAMIVUDINE [Suspect]
     Indication: HIV INFECTION
  3. LOPINAVIR [Suspect]
     Indication: HIV INFECTION
  4. RITONAVIR [Suspect]
     Indication: HIV INFECTION

REACTIONS (5)
  - Immune reconstitution inflammatory syndrome [None]
  - Asthenia [None]
  - Confusional state [None]
  - Speech disorder [None]
  - Leukoencephalopathy [None]
